FAERS Safety Report 4292591-9 (Version None)
Quarter: 2004Q1

REPORT INFORMATION
  Report Type: 
  Country: None (occurrence: None)
  Receive Date: 20040211
  Receipt Date: 20040211
  Transmission Date: 20041129
  Serious: Yes (Other)
  Sender: FDA-Public Use
  Company Number: None

PATIENT
  Sex: Male
  Weight: 81.6475 kg

DRUGS (1)
  1. ZICAM NASAL GEL ZINCUM GLUCONICUM 2X GEL TECH [Suspect]
     Indication: NASOPHARYNGITIS
     Dosage: 1 4 HOURS NASAL
     Route: 045
     Dates: start: 20031014, end: 20031020

REACTIONS (4)
  - AGEUSIA [None]
  - ANOSMIA [None]
  - DRUG INEFFECTIVE [None]
  - HYPERSENSITIVITY [None]
